FAERS Safety Report 7319045-7 (Version None)
Quarter: 2011Q1

REPORT INFORMATION
  Report Type: 
  Country: None (occurrence: None)
  Receive Date: 20110228
  Receipt Date: 20090309
  Transmission Date: 20110831
  Serious: Yes (Death, Hospitalization, Other)
  Sender: FDA-Public Use
  Company Number: US-BAYER-200914702NA

PATIENT
  Sex: Female
  Weight: 57.7 kg

DRUGS (25)
  1. GLIPIZIDE [Concomitant]
     Dosage: LONG-TERM USE
     Route: 048
  2. FENTANYL [Concomitant]
     Dosage: DAILY DOSE 40 MG
     Route: 042
     Dates: start: 20070530, end: 20070530
  3. COREG [Concomitant]
     Dosage: LONG-TERM USE
     Route: 048
  4. PLAVIX [Concomitant]
     Dosage: LONG-TERM USE
     Route: 048
  5. POTASSIUM [Concomitant]
     Dosage: LONG-TERM TREATMENT
     Route: 048
  6. ATENOLOL [Concomitant]
     Dosage: LONG-TERM USE
     Route: 048
  7. TRASYLOL [Suspect]
     Indication: VASCULAR OPERATION
  8. ASPIRIN [Concomitant]
     Dosage: LONG-TERM TREATMENT
     Route: 048
  9. COUMADIN [Concomitant]
     Dosage: VARIED
     Route: 048
     Dates: start: 20070301, end: 20070501
  10. NORVASC [Concomitant]
     Dosage: LONG-TERM USE
     Route: 048
     Dates: end: 20070401
  11. DIGOXIN [Concomitant]
     Dosage: LONG-TERM USE
     Route: 048
  12. INSULIN [Concomitant]
     Dosage: DAILY DOSE 35 IU
     Dates: start: 20070530, end: 20070530
  13. HEPARIN [Concomitant]
     Dosage: DAILY DOSE 6700 U
     Route: 042
     Dates: start: 20070530, end: 20070530
  14. METFORMIN [Concomitant]
     Dosage: LONG-TERM USE
     Route: 048
  15. TRASYLOL [Suspect]
     Indication: AORTIC VALVE REPLACEMENT
     Dosage: 200 CC LOADING DOSE, THAN 50 CC/H
     Route: 042
     Dates: start: 20070530, end: 20070530
  16. LASIX [Concomitant]
     Dosage: 40 MG, BID, LONG TERM USE
     Route: 048
  17. LOVENOX [Concomitant]
     Dosage: DAILY DOSE 60 MG
     Route: 048
     Dates: start: 20070427
  18. VERSED [Concomitant]
     Dosage: DAILY DOSE 7 MG
     Route: 042
     Dates: start: 20070530, end: 20070530
  19. VANCOMYCIN [Concomitant]
     Dosage: DAILY DOSE 1 G
     Route: 042
     Dates: start: 20070530, end: 20070530
  20. RED BLOOD CELLS [Concomitant]
     Dosage: DAILY DOSE 1 U
     Dates: start: 20070530, end: 20070530
  21. LASIX [Concomitant]
     Dosage: DAILY DOSE 10 MG
     Route: 042
     Dates: start: 20070530, end: 20070530
  22. PRAVACHOL [Concomitant]
     Dosage: LONG-TERM USE
     Route: 048
  23. NITROGLYCERIN [Concomitant]
     Dosage: UNK
     Route: 042
     Dates: start: 20070530, end: 20070530
  24. PROTAMINE SULFATE [Concomitant]
     Dosage: DAILY DOSE 250 MG
     Route: 042
     Dates: start: 20070530, end: 20070530
  25. MAGNESIUM SULFATE [Concomitant]
     Dosage: DAILY DOSE 2 G
     Route: 042
     Dates: start: 20070530, end: 20070530

REACTIONS (11)
  - STRESS [None]
  - ANHEDONIA [None]
  - UNEVALUABLE EVENT [None]
  - RENAL INJURY [None]
  - RENAL FAILURE [None]
  - ANXIETY [None]
  - FEAR [None]
  - PAIN [None]
  - INJURY [None]
  - DEATH [None]
  - EMOTIONAL DISTRESS [None]
